FAERS Safety Report 10215994 (Version 1)
Quarter: 2014Q2

REPORT INFORMATION
  Report Type: Spontaneous
  Country: US (occurrence: US)
  Receive Date: 20140604
  Receipt Date: 20140604
  Transmission Date: 20141212
  Serious: Yes (Hospitalization, Other)
  Sender: FDA-Public Use
  Company Number: 2014SP002960

PATIENT
  Age: 56 Year
  Sex: Female
  Weight: 69.4 kg

DRUGS (7)
  1. METHOTREXATE [Suspect]
     Indication: ARTHRITIS REACTIVE
     Dates: start: 201310
  2. METHOTREXATE [Suspect]
     Indication: ARTHRITIS REACTIVE
  3. ADALIMUMAB [Suspect]
     Indication: ARTHRITIS REACTIVE
     Route: 058
     Dates: start: 200804, end: 201402
  4. ADALIMUMAB [Suspect]
     Indication: ARTHRITIS REACTIVE
     Route: 058
     Dates: start: 20140326
  5. CELECOXIB [Suspect]
     Indication: PRODUCT USED FOR UNKNOWN INDICATION
     Route: 058
  6. GABAPENTIN [Concomitant]
     Indication: FIBROMYALGIA
  7. SPIRONOLACTONE [Concomitant]
     Indication: ALOPECIA

REACTIONS (12)
  - Deafness [Recovered/Resolved]
  - Tympanic membrane disorder [Unknown]
  - Ear infection [Unknown]
  - Ear pain [Unknown]
  - Otorrhoea [Unknown]
  - Ear canal erythema [Unknown]
  - Ear swelling [Unknown]
  - Middle ear effusion [Recovered/Resolved]
  - Headache [Unknown]
  - Facial pain [Unknown]
  - Arthritis [Unknown]
  - Hepatic enzyme increased [Recovered/Resolved]
